FAERS Safety Report 4906558-8 (Version None)
Quarter: 2006Q1

REPORT INFORMATION
  Report Type: 
  Country: None (occurrence: None)
  Receive Date: 20060206
  Receipt Date: 20060124
  Transmission Date: 20060701
  Serious: Yes (Other)
  Sender: FDA-Public Use
  Company Number: 8014664

PATIENT

DRUGS (1)
  1. PREDNISOLONE SODIUM PHOSPHATE [Suspect]
     Dosage: EYE

REACTIONS (4)
  - BLINDNESS TRANSIENT [None]
  - CORNEAL OPACITY [None]
  - IRRITABILITY [None]
  - PHARMACEUTICAL PRODUCT COMPLAINT [None]
